FAERS Safety Report 6504482-0 (Version None)
Quarter: 2009Q4

REPORT INFORMATION
  Report Type: 
  Country: None (occurrence: None)
  Receive Date: 20091217
  Receipt Date: 20091213
  Transmission Date: 20100525
  Serious: Yes (Hospitalization, Disabling)
  Sender: FDA-Public Use
  Company Number: US-B.I. PHARMACEUTICALS,INC./RIDGEFIELD-2009-BP-14384BP

PATIENT
  Sex: Male

DRUGS (13)
  1. SPIRIVA [Suspect]
     Indication: CHRONIC OBSTRUCTIVE PULMONARY DISEASE
     Dosage: 18 MCG
     Route: 055
     Dates: start: 20040101
  2. ADVAIR DISKUS 100/50 [Concomitant]
     Indication: ASTHMA
  3. ADVAIR DISKUS 100/50 [Concomitant]
     Indication: CHRONIC OBSTRUCTIVE PULMONARY DISEASE
  4. SINGULAIR [Concomitant]
     Indication: CHRONIC OBSTRUCTIVE PULMONARY DISEASE
     Dates: start: 20060101
  5. LEVOTHYROXINE SODIUM [Concomitant]
     Indication: THYROID DISORDER
  6. CLONAZEPAM [Concomitant]
     Indication: SEDATIVE THERAPY
  7. DIPHENHYDRAMINE HCL [Concomitant]
     Indication: NASAL DISORDER
  8. DIPHENHYDRAMINE HCL [Concomitant]
     Indication: PRURITUS
  9. RESTASIS OPHTHALMIC [Concomitant]
     Indication: BLINDNESS UNILATERAL
  10. FLAX SEED [Concomitant]
     Indication: EYE DISORDER
  11. CELEXA [Concomitant]
     Indication: ANXIETY
  12. FOLIC ACID [Concomitant]
     Indication: PROPHYLAXIS
  13. HYDROCHLOROTHIAZIDE [Concomitant]

REACTIONS (5)
  - GASTROOESOPHAGEAL REFLUX DISEASE [None]
  - LEG AMPUTATION [None]
  - PAIN [None]
  - RHEUMATOID ARTHRITIS [None]
  - SWOLLEN TONGUE [None]
